FAERS Safety Report 8333640-8 (Version None)
Quarter: 2012Q2

REPORT INFORMATION
  Report Type: 
  Country: None (occurrence: None)
  Receive Date: 20120503
  Receipt Date: 20120425
  Transmission Date: 20120825
  Serious: Yes (Other)
  Sender: FDA-Public Use
  Company Number: US-BAYER-2012-041558

PATIENT
  Age: 25 Year
  Sex: Male
  Weight: 111 kg

DRUGS (4)
  1. METFORMIN HCL [Concomitant]
  2. HYDROCHLOROTHIAZIDE [Concomitant]
  3. NAPROXEN SODIUM [Suspect]
     Indication: PAIN
     Dosage: 2 CAPLETS EVERY 8-12 HOURS
     Route: 048
     Dates: start: 20120401
  4. GLYBURIDE [Concomitant]

REACTIONS (3)
  - DYSARTHRIA [None]
  - ABDOMINAL PAIN UPPER [None]
  - ASTHENIA [None]
